FAERS Safety Report 8196265-3 (Version None)
Quarter: 2012Q1

REPORT INFORMATION
  Report Type: 
  Country: None (occurrence: None)
  Receive Date: 20120309
  Receipt Date: 20120305
  Transmission Date: 20120608
  Serious: No
  Sender: FDA-Public Use
  Company Number: US-PFIZER INC-2012059443

PATIENT
  Sex: Female
  Weight: 53.1 kg

DRUGS (6)
  1. PREMARIN [Suspect]
     Indication: OFF LABEL USE
     Dosage: 0.06 MG, DAILY
     Route: 048
  2. PREMARIN [Suspect]
     Indication: FEELING ABNORMAL
  3. PREMARIN [Suspect]
     Indication: ACTIVITIES OF DAILY LIVING IMPAIRED
  4. PREMARIN [Suspect]
     Indication: CONTRACEPTION
     Dosage: 0.03 MG, DAILY
     Route: 048
  5. PREMARIN [Suspect]
     Indication: ENDOCRINE DISORDER
     Dosage: DAILY
     Route: 048
  6. VITAMIN D [Concomitant]
     Dosage: UNK

REACTIONS (5)
  - HYPOKINESIA [None]
  - MUSCULAR WEAKNESS [None]
  - HEADACHE [None]
  - ACTIVITIES OF DAILY LIVING IMPAIRED [None]
  - ASTHENIA [None]
